FAERS Safety Report 19486212 (Version 1)
Quarter: 2021Q3

REPORT INFORMATION
  Report Type: Spontaneous
  Country: US (occurrence: US)
  Receive Date: 20210701
  Receipt Date: 20210701
  Transmission Date: 20211014
  Serious: No
  Sender: FDA-Public Use
  Company Number: None

PATIENT
  Age: 74 Year
  Sex: Male
  Weight: 99 kg

DRUGS (2)
  1. CELECOXIB (CELECOXIB 200MG CAP) [Suspect]
     Active Substance: CELECOXIB
     Indication: SURGERY
     Route: 048
     Dates: start: 20200924, end: 20200924
  2. CELECOXIB (CELECOXIB 200MG CAP) [Suspect]
     Active Substance: CELECOXIB
     Indication: HYPERTENSION

REACTIONS (4)
  - Cerebrovascular accident [None]
  - Angioedema [None]
  - Obstructive airways disorder [None]
  - Ischaemia [None]

NARRATIVE: CASE EVENT DATE: 20200924
